FAERS Safety Report 14856025 (Version 4)
Quarter: 2018Q3

REPORT INFORMATION
  Report Type: Spontaneous
  Country: US (occurrence: US)
  Receive Date: 20180507
  Receipt Date: 20180817
  Transmission Date: 20181010
  Serious: Yes (Hospitalization)
  Sender: FDA-Public Use
  Company Number: US-ACTELION-A-US2018-171081

PATIENT
  Age: 16 Year
  Sex: Female
  Weight: 46.26 kg

DRUGS (1)
  1. TRACLEER [Suspect]
     Active Substance: BOSENTAN
     Indication: PULMONARY ARTERIAL HYPERTENSION
     Dosage: 62.5 MG, BID
     Route: 048

REACTIONS (8)
  - Viral infection [Unknown]
  - Dehydration [Unknown]
  - Abdominal pain lower [Unknown]
  - Bacterial infection [Unknown]
  - Pneumonia [Unknown]
  - Xanthopsia [Unknown]
  - Oxygen saturation decreased [Unknown]
  - Pyrexia [Unknown]

NARRATIVE: CASE EVENT DATE: 201803
